FAERS Safety Report 25127262 (Version 1)
Quarter: 2025Q1

REPORT INFORMATION
  Report Type: Spontaneous
  Country: US (occurrence: US)
  Receive Date: 20250327
  Receipt Date: 20250327
  Transmission Date: 20250409
  Serious: No
  Sender: UCB
  Company Number: US-UCBSA-2024068581

PATIENT
  Sex: Female

DRUGS (11)
  1. BIMZELX [Suspect]
     Active Substance: BIMEKIZUMAB-BKZX
     Indication: Psoriatic arthropathy
     Dosage: 160 MILLIGRAM, EV 4 WEEKS
     Route: 058
     Dates: start: 20241204
  2. EPINEPHRINE HYDROCHLORIDE [Concomitant]
     Active Substance: EPINEPHRINE HYDROCHLORIDE
     Indication: Product used for unknown indication
  3. ALPRAZOLAM [Concomitant]
     Active Substance: ALPRAZOLAM
     Indication: Product used for unknown indication
  4. ATORVASTATIN [Concomitant]
     Active Substance: ATORVASTATIN
     Indication: Product used for unknown indication
  5. CLOBETASOL [Concomitant]
     Active Substance: CLOBETASOL
     Indication: Product used for unknown indication
  6. COSENTYX [Concomitant]
     Active Substance: SECUKINUMAB
     Indication: Product used for unknown indication
  7. DEXAMETH SOD PHOS [Concomitant]
     Indication: Product used for unknown indication
  8. DIAZEPAM [Concomitant]
     Active Substance: DIAZEPAM
     Indication: Product used for unknown indication
  9. DICLOFENAC [Concomitant]
     Active Substance: DICLOFENAC
     Indication: Product used for unknown indication
  10. DIPRIVAN [Concomitant]
     Active Substance: PROPOFOL
     Indication: Product used for unknown indication
  11. FENTANYL CIT [Concomitant]
     Indication: Product used for unknown indication

REACTIONS (2)
  - Drug ineffective [Unknown]
  - General physical health deterioration [Unknown]

NARRATIVE: CASE EVENT DATE: 20240101
